FAERS Safety Report 18898543 (Version 1)
Quarter: 2021Q1

REPORT INFORMATION
  Report Type: Spontaneous
  Country: CN (occurrence: CN)
  Receive Date: 20210216
  Receipt Date: 20210216
  Transmission Date: 20210420
  Serious: Yes (Hospitalization)
  Sender: FDA-Public Use
  Company Number: CN-PFIZER INC-2021123226

PATIENT
  Age: 35 Year
  Sex: Male

DRUGS (4)
  1. IDARUBICIN HCL [Suspect]
     Active Substance: IDARUBICIN HYDROCHLORIDE
     Indication: ACUTE MYELOID LEUKAEMIA
     Dosage: 10 MG, CYCLIC (DAY 1 TO DAY 3)
     Dates: start: 20190805
  2. CYTARABINE. [Suspect]
     Active Substance: CYTARABINE
     Indication: ACUTE MYELOID LEUKAEMIA
     Dosage: 200 MG, CYCLIC (DAY 1 TO DAY 7)
     Dates: start: 20190712
  3. CYTARABINE. [Suspect]
     Active Substance: CYTARABINE
     Dosage: 200 MG, CYCLIC (DAY 1 TO DAY 7)
     Dates: start: 20190805
  4. DAUNORUBICIN [Suspect]
     Active Substance: DAUNORUBICIN
     Indication: ACUTE MYELOID LEUKAEMIA
     Dosage: 60 MG, CYCLIC (DAY 1 TO DAY 3)
     Dates: start: 20190712

REACTIONS (2)
  - Skin ulcer [Recovered/Resolved]
  - Thromboangiitis obliterans [Recovered/Resolved]

NARRATIVE: CASE EVENT DATE: 20190722
